FAERS Safety Report 7431289-2 (Version None)
Quarter: 2011Q2

REPORT INFORMATION
  Report Type: 
  Country: None (occurrence: None)
  Receive Date: 20110421
  Receipt Date: 20110120
  Transmission Date: 20111010
  Serious: No
  Sender: FDA-Public Use
  Company Number: US-TEVA-264339USA

PATIENT
  Sex: Female
  Weight: 63.56 kg

DRUGS (4)
  1. TOPAMAX [Concomitant]
     Indication: WEIGHT INCREASED
     Route: 048
  2. CYMBALTA [Concomitant]
     Indication: DEPRESSION
     Route: 048
  3. RISPERIDONE [Concomitant]
     Indication: ANXIETY
     Route: 048
  4. PLAN B ONE-STEP [Suspect]
     Indication: POST COITAL CONTRACEPTION
     Dosage: 1.5 MILLIGRAM;
     Route: 048
     Dates: start: 20110118, end: 20110118

REACTIONS (2)
  - BREAST TENDERNESS [None]
  - VULVOVAGINAL DISCOMFORT [None]
